FAERS Safety Report 15821028 (Version 1)
Quarter: 2019Q1

REPORT INFORMATION
  Report Type: Spontaneous
  Country: CA (occurrence: CA)
  Receive Date: 20190114
  Receipt Date: 20190114
  Transmission Date: 20190417
  Serious: Yes (Life-Threatening, Other)
  Sender: FDA-Public Use
  Company Number: CA-GLAXOSMITHKLINE-CA2019GSK005054

PATIENT
  Age: 6 Day
  Sex: Female
  Weight: 3 kg

DRUGS (1)
  1. ACYCLOVIR. [Suspect]
     Active Substance: ACYCLOVIR
     Indication: CONGENITAL HERPES SIMPLEX INFECTION
     Dosage: UNK

REACTIONS (1)
  - Drug ineffective [Unknown]
